FAERS Safety Report 5913656-9 (Version None)
Quarter: 2008Q4

REPORT INFORMATION
  Report Type: 
  Country: None (occurrence: None)
  Receive Date: 20081009
  Receipt Date: 20080918
  Transmission Date: 20090506
  Serious: Yes (Hospitalization)
  Sender: FDA-Public Use
  Company Number: CA-AVENTIS-200815388EU

PATIENT
  Age: 64 Year
  Sex: Male
  Weight: 130 kg

DRUGS (16)
  1. FUROSEMIDE [Suspect]
  2. RAMIPRIL [Suspect]
  3. IRBESARTAN [Suspect]
  4. ASPIRIN [Concomitant]
  5. PLAVIX [Concomitant]
  6. ATORVASTATIN [Concomitant]
  7. LIPIDIL [Concomitant]
  8. LISINOPRIL [Concomitant]
  9. INSULIN [Concomitant]
     Dosage: DOSE: 60U BREAKFEAST, 70U DINNER
     Route: 058
  10. HUMALOG [Concomitant]
     Dosage: DOSE: 33U BREAKFAST, 33U LUNCH, 58U DINNER
     Route: 058
  11. ZOLOFT [Concomitant]
  12. TRUSOPT [Concomitant]
     Dosage: DOSE: RIGHT EYE
     Route: 047
  13. TRAMADOL HCL [Concomitant]
     Dosage: DOSE: RIGHT EYE
     Route: 047
  14. ALPHAGAN                           /01341102/ [Concomitant]
     Dosage: DOSE: RIGHT EYE
     Route: 047
  15. CODE UNBROKEN [Concomitant]
     Route: 048
     Dates: start: 20061218
  16. CHLORTHALIDONE [Concomitant]

REACTIONS (1)
  - RENAL FAILURE ACUTE [None]
